FAERS Safety Report 5176431-1 (Version None)
Quarter: 2006Q4

REPORT INFORMATION
  Report Type: 
  Country: None (occurrence: None)
  Receive Date: 20061215
  Receipt Date: 20061206
  Transmission Date: 20070319
  Serious: Yes (Disabling)
  Sender: FDA-Public Use
  Company Number: GR-ROCHE-474227

PATIENT
  Age: 58 Year
  Sex: Female

DRUGS (3)
  1. BONIVA [Suspect]
     Indication: DRUG USE FOR UNKNOWN INDICATION
     Dosage: FORM REPORTED AS F.C.TABS.
     Route: 048
     Dates: start: 20061106
  2. ONE-ALPHA [Concomitant]
  3. CALCIUM SUPPLEMENT [Concomitant]

REACTIONS (3)
  - ARTHRALGIA [None]
  - ARTHRITIS [None]
  - DEPRESSED MOOD [None]
